FAERS Safety Report 20053934 (Version 2)
Quarter: 2021Q4

REPORT INFORMATION
  Report Type: Spontaneous
  Country: GB (occurrence: GB)
  Receive Date: 20211110
  Receipt Date: 20211121
  Transmission Date: 20220304
  Serious: Yes (Other)
  Sender: FDA-Public Use
  Company Number: None

PATIENT
  Age: 81 Year
  Sex: Female
  Weight: 85 kg

DRUGS (6)
  1. SITAGLIPTIN PHOSPHATE [Suspect]
     Active Substance: SITAGLIPTIN PHOSPHATE
     Indication: Type 2 diabetes mellitus
     Dosage: 50 MILLIGRAM, QD
     Dates: start: 20211014, end: 20211102
  2. BUTRANS [Concomitant]
     Active Substance: BUPRENORPHINE
     Indication: Hypertension
     Dosage: REMOVE OLD PATCH BEFORE APPLYING NEW PATCH. 20MICROGRAMS/HOUR
     Dates: start: 20211007
  3. PFIZER-BIONTECH COVID-19 VACCINE [Concomitant]
     Active Substance: TOZINAMERAN
     Indication: COVID-19 immunisation
     Route: 030
     Dates: start: 20211007, end: 20211007
  4. ORAMORPH SR SUSTAINED RELEASE [Concomitant]
     Active Substance: MORPHINE SULFATE
     Indication: Hypertension
     Dosage: ONE 2.5ML SPOONFUL TO BE TAKEN 4-6 HOURS APART UP TO QDS WHEN NEEDED FOR BREAKTHROUGH PAIN
     Dates: start: 20211007
  5. ACETAMINOPHEN [Concomitant]
     Active Substance: ACETAMINOPHEN
     Indication: Hypertension
     Dosage: 4 - 6 HOURS APART (NO MORE THAN FOUR TIMES A DAY)
     Dates: start: 20211007
  6. INFLUENZA VIRUS VACCINE [Concomitant]
     Active Substance: INFLUENZA VIRUS VACCINE
     Indication: Influenza immunisation
     Dates: start: 20211007, end: 20211007

REACTIONS (7)
  - Nocturnal dyspnoea [Recovered/Resolved]
  - Headache [Recovered/Resolved]
  - Paraesthesia [Recovered/Resolved]
  - Arthralgia [Recovered/Resolved]
  - Joint stiffness [Recovered/Resolved]
  - Condition aggravated [Recovered/Resolved]
  - Formication [Recovered/Resolved]
